FAERS Safety Report 18869541 (Version 1)
Quarter: 2021Q1

REPORT INFORMATION
  Report Type: Other
  Country: CA (occurrence: CA)
  Receive Date: 20210210
  Receipt Date: 20210210
  Transmission Date: 20210420
  Serious: Yes (Other)
  Sender: FDA-Public Use
  Company Number: CA-APOTEX-2021AP002547

PATIENT
  Age: 50 Year
  Sex: Male

DRUGS (4)
  1. ALPHAGAN P [Suspect]
     Active Substance: BRIMONIDINE TARTRATE
     Indication: NORMAL TENSION GLAUCOMA
     Dosage: 2 DOSAGE FORM, QD
     Route: 047
  2. TIMOLOL. [Suspect]
     Active Substance: TIMOLOL
     Indication: NORMAL TENSION GLAUCOMA
     Dosage: 1 DOSAGE FORM, QD
     Route: 047
  3. BRINZOLAMIDE [Suspect]
     Active Substance: BRINZOLAMIDE
     Indication: NORMAL TENSION GLAUCOMA
     Dosage: 3 DOSAGE FORM, QD
     Route: 047
  4. LUMIGAN [Suspect]
     Active Substance: BIMATOPROST
     Indication: NORMAL TENSION GLAUCOMA
     Dosage: UNK
     Route: 047

REACTIONS (1)
  - Normal tension glaucoma [Unknown]
